FAERS Safety Report 4603344-3 (Version None)
Quarter: 2005Q1

REPORT INFORMATION
  Report Type: 
  Country: None (occurrence: None)
  Receive Date: 20050308
  Receipt Date: 20050223
  Transmission Date: 20050727
  Serious: Yes (Hospitalization)
  Sender: FDA-Public Use
  Company Number: 2004084112

PATIENT
  Age: 79 Year
  Sex: Female

DRUGS (4)
  1. UNASYN [Suspect]
     Indication: RESPIRATORY TRACT INFECTION
     Dosage: 6 GRAM (1 D), INTRAVENOUS
     Route: 042
     Dates: start: 20040827, end: 20040831
  2. CEFDINIR (CEFDINIR) [Concomitant]
  3. DILTIAZEM HYDROCHLORIDE [Concomitant]
  4. MANIDIPINE HYDROCHLORIDE (MANIDIPINE HYDROCHLORIDE) [Concomitant]

REACTIONS (2)
  - ACUTE GENERALISED EXANTHEMATOUS PUSTULOSIS [None]
  - LYMPHOCYTE STIMULATION TEST POSITIVE [None]
